FAERS Safety Report 10478849 (Version 1)
Quarter: 2014Q3

REPORT INFORMATION
  Report Type: Spontaneous
  Country: RU (occurrence: RU)
  Receive Date: 20140926
  Receipt Date: 20140926
  Transmission Date: 20150326
  Serious: Yes (Hospitalization)
  Sender: FDA-Public Use
  Company Number: RU-ABBVIE-14P-251-1288592-00

PATIENT
  Age: 39 Year
  Sex: Female

DRUGS (8)
  1. FOSAMPRENAVIR [Suspect]
     Active Substance: FOSAMPRENAVIR
     Indication: HIV INFECTION
     Dates: start: 20130415
  2. RALTEGRAVIR [Suspect]
     Active Substance: RALTEGRAVIR
     Indication: HIV INFECTION
     Dates: start: 20120809, end: 201309
  3. STAVUDINE. [Suspect]
     Active Substance: STAVUDINE
     Indication: HIV INFECTION
     Dates: start: 201309, end: 201404
  4. RITONAVIR [Suspect]
     Active Substance: RITONAVIR
     Indication: HIV INFECTION
     Dates: start: 20120809
  5. COMBIVIR [Suspect]
     Active Substance: LAMIVUDINE\ZIDOVUDINE
     Indication: HIV INFECTION
     Dates: start: 20110418, end: 20120809
  6. LOPINAVIR [Suspect]
     Active Substance: LOPINAVIR
     Indication: HIV INFECTION
     Dates: start: 20120809, end: 20130415
  7. NEVIRAPINE. [Suspect]
     Active Substance: NEVIRAPINE
     Indication: HIV INFECTION
     Dates: start: 20110418, end: 20120809
  8. MARAVIROC [Suspect]
     Active Substance: MARAVIROC
     Indication: HIV INFECTION
     Dates: start: 20130415

REACTIONS (5)
  - Anaemia [Recovered/Resolved]
  - Chronic inflammatory demyelinating polyradiculoneuropathy [Not Recovered/Not Resolved]
  - Drug ineffective [Unknown]
  - CD4 lymphocytes decreased [Unknown]
  - Viral load decreased [Unknown]

NARRATIVE: CASE EVENT DATE: 201404
